FAERS Safety Report 6096325-7 (Version None)
Quarter: 2009Q1

REPORT INFORMATION
  Report Type: 
  Country: None (occurrence: None)
  Receive Date: 20090227
  Receipt Date: 20081113
  Transmission Date: 20090719
  Serious: No
  Sender: FDA-Public Use
  Company Number: A0756235A

PATIENT
  Age: 74 Year
  Sex: Female

DRUGS (6)
  1. LAMOTRIGINE [Suspect]
     Indication: DEPRESSION
     Dosage: 25MG PER DAY
     Route: 048
     Dates: start: 20081106, end: 20081110
  2. KLONOPIN [Concomitant]
  3. GEODON [Concomitant]
  4. ZOCOR [Concomitant]
  5. COZAAR [Concomitant]
  6. ATENOLOL [Concomitant]

REACTIONS (4)
  - AGITATION [None]
  - ANXIETY [None]
  - PANIC REACTION [None]
  - PSYCHOMOTOR HYPERACTIVITY [None]
